FAERS Safety Report 9757376 (Version 1)
Quarter: 2013Q4

REPORT INFORMATION
  Report Type: Spontaneous
  Country: ZA (occurrence: ZA)
  Receive Date: 20131214
  Receipt Date: 20131214
  Transmission Date: 20140711
  Serious: Yes (Hospitalization, Other)
  Sender: FDA-Public Use
  Company Number: ZA-009507513-1312ZAF003105

PATIENT
  Age: 52 Year
  Sex: Male

DRUGS (2)
  1. INTRONA [Suspect]
     Dosage: 35 MIU
     Route: 042
     Dates: start: 20131017
  2. INTRONA [Suspect]
     Dosage: 30 MIU
     Dates: start: 2013

REACTIONS (5)
  - Metastases to liver [Unknown]
  - Gastritis [Unknown]
  - Nausea [Unknown]
  - Overdose [Unknown]
  - Liver function test abnormal [Unknown]
